FAERS Safety Report 7593568-8 (Version None)
Quarter: 2011Q2

REPORT INFORMATION
  Report Type: 
  Country: None (occurrence: None)
  Receive Date: 20110609
  Receipt Date: 20110411
  Transmission Date: 20111010
  Serious: No
  Sender: FDA-Public Use
  Company Number: TH-2011-00078

PATIENT
  Age: 43 Year
  Sex: Female

DRUGS (2)
  1. EGRIFTA [Suspect]
     Indication: LIPODYSTROPHY ACQUIRED
     Dates: end: 20110314
  2. UNSPECIFIED MEDICATIONS [Concomitant]

REACTIONS (1)
  - METRORRHAGIA [None]
